FAERS Safety Report 8996136 (Version 1)
Quarter: 2013Q1

REPORT INFORMATION
  Report Type: Spontaneous
  Country: NL (occurrence: NL)
  Receive Date: 20130103
  Receipt Date: 20130103
  Transmission Date: 20140127
  Serious: Yes (Hospitalization)
  Sender: FDA-Public Use
  Company Number: -VALEANT-2013VX000062

PATIENT
  Age: 92 Year
  Sex: Male

DRUGS (10)
  1. EFUDIX [Suspect]
     Indication: ACTINIC KERATOSIS
     Route: 065
     Dates: start: 201211, end: 201211
  2. BETADINE ZALF [Concomitant]
     Route: 065
  3. DEVARON [Concomitant]
     Route: 065
  4. THIAMINE HCL PCH [Concomitant]
     Route: 065
  5. FERROFUMARAAT CF [Concomitant]
     Route: 065
  6. ACETYLSALICYLZUUR CARDIO PCH [Concomitant]
     Route: 065
  7. AERIUS [Concomitant]
     Route: 048
  8. HYDROCHLOROTHIAZIDE [Concomitant]
     Route: 065
  9. PANTOPRAZOL PCH [Concomitant]
     Route: 065
  10. ENALAPRIL [Concomitant]
     Route: 065

REACTIONS (2)
  - Pyrexia [Recovered/Resolved]
  - Skin reaction [Recovered/Resolved]
